FAERS Safety Report 20011592 (Version 1)
Quarter: 2021Q4

REPORT INFORMATION
  Report Type: Spontaneous
  Country: FR (occurrence: FR)
  Receive Date: 20211029
  Receipt Date: 20211029
  Transmission Date: 20220303
  Serious: Yes (Disabling, Other)
  Sender: FDA-Public Use
  Company Number: FR-ABBVIE-21K-056-4138728-00

PATIENT
  Age: 70 Year
  Sex: Female

DRUGS (6)
  1. DEPAKOTE [Suspect]
     Active Substance: DIVALPROEX SODIUM
     Indication: Bipolar disorder
     Dosage: IN THE EVENING
     Route: 065
     Dates: start: 2012, end: 20181124
  2. DEPAKOTE [Suspect]
     Active Substance: DIVALPROEX SODIUM
     Route: 065
     Dates: start: 2012, end: 201902
  3. MIANSERIN HYDROCHLORIDE [Suspect]
     Active Substance: MIANSERIN HYDROCHLORIDE
     Indication: Depression
     Route: 065
     Dates: start: 201901
  4. GABAPENTIN [Suspect]
     Active Substance: GABAPENTIN
     Indication: Tremor
     Route: 065
     Dates: start: 201706, end: 201901
  5. MYSOLINE [Suspect]
     Active Substance: PRIMIDONE
     Indication: Tremor
     Dosage: 1 TABLET IN THE MORNING AND ONE IN THE EVENING
     Route: 065
  6. MYSOLINE [Suspect]
     Active Substance: PRIMIDONE
     Route: 065
     Dates: start: 201901

REACTIONS (8)
  - Multiple system atrophy [Not Recovered/Not Resolved]
  - Vertigo positional [Not Recovered/Not Resolved]
  - Balance disorder [Unknown]
  - Cerebral disorder [Not Recovered/Not Resolved]
  - Neurodegenerative disorder [Not Recovered/Not Resolved]
  - Vertigo [Unknown]
  - Tremor [Recovered/Resolved]
  - Nystagmus [Not Recovered/Not Resolved]
